FAERS Safety Report 5014573-1 (Version None)
Quarter: 2006Q2

REPORT INFORMATION
  Report Type: 
  Country: None (occurrence: None)
  Receive Date: 20060525
  Receipt Date: 20060512
  Transmission Date: 20061013
  Serious: Yes (Other)
  Sender: FDA-Public Use
  Company Number: 2006063348

PATIENT
  Age: 71 Year
  Sex: Male
  Weight: 81.6475 kg

DRUGS (3)
  1. ZYVOX [Suspect]
     Dosage: 1200  MG (600 MG, 2 IN 1 D), INTRAVENOUS; 1200 MG (600 MG, 2 IN 1 D), ORAL
     Route: 042
     Dates: start: 20060407, end: 20060415
  2. ZYVOX [Suspect]
     Dosage: 1200  MG (600 MG, 2 IN 1 D), INTRAVENOUS; 1200 MG (600 MG, 2 IN 1 D), ORAL
     Route: 042
     Dates: start: 20060415, end: 20060506
  3. VANCOMYCIN [Concomitant]

REACTIONS (4)
  - DYSGEUSIA [None]
  - NAUSEA [None]
  - ORAL INTAKE REDUCED [None]
  - WEIGHT DECREASED [None]
